FAERS Safety Report 17548293 (Version 4)
Quarter: 2021Q1

REPORT INFORMATION
  Report Type: Spontaneous
  Country: US (occurrence: US)
  Receive Date: 20200317
  Receipt Date: 20210322
  Transmission Date: 20210419
  Serious: Yes (Hospitalization)
  Sender: FDA-Public Use
  Company Number: US-GLOBAL BLOOD THERAPEUTICS INC-US-GBT-20-00296

PATIENT
  Age: 45 Year
  Sex: Female

DRUGS (3)
  1. OXBRYTA [Suspect]
     Active Substance: VOXELOTOR
     Indication: SICKLE CELL ANAEMIA WITH CRISIS
  2. PULMICORT TURBUHALER [Concomitant]
     Active Substance: BUDESONIDE
     Indication: PRODUCT USED FOR UNKNOWN INDICATION
     Dosage: NOT PROVIDED
  3. OXBRYTA [Suspect]
     Active Substance: VOXELOTOR
     Indication: SICKLE CELL DISEASE
     Route: 048
     Dates: start: 20200218

REACTIONS (8)
  - Nausea [Recovering/Resolving]
  - Sickle cell anaemia with crisis [Recovered/Resolved]
  - Vision blurred [Recovering/Resolving]
  - Sickle cell anaemia with crisis [Unknown]
  - Pneumonia [Unknown]
  - Sickle cell anaemia with crisis [Recovered/Resolved]
  - Rash erythematous [Recovered/Resolved]
  - Abdominal discomfort [Recovering/Resolving]

NARRATIVE: CASE EVENT DATE: 202002
